FAERS Safety Report 6335501-2 (Version None)
Quarter: 2009Q3

REPORT INFORMATION
  Report Type: 
  Country: None (occurrence: None)
  Receive Date: 20090831
  Receipt Date: 20090819
  Transmission Date: 20100115
  Serious: Yes (Other)
  Sender: FDA-Public Use
  Company Number: US-PFIZER INC-2009259369

PATIENT
  Age: 54 Year
  Sex: Male

DRUGS (2)
  1. CHANTIX [Suspect]
     Indication: SMOKING CESSATION THERAPY
     Dates: start: 20090701, end: 20090801
  2. PRIMATENE MIST [Concomitant]
     Dosage: UNK

REACTIONS (6)
  - ASTHENIA [None]
  - DEPRESSION [None]
  - INSOMNIA [None]
  - MYALGIA [None]
  - NERVOUS SYSTEM DISORDER [None]
  - SUICIDAL IDEATION [None]
